FAERS Safety Report 14270630 (Version 1)
Quarter: 2017Q4

REPORT INFORMATION
  Report Type: Report from Study
  Country: PK (occurrence: PK)
  Receive Date: 20171211
  Receipt Date: 20171211
  Transmission Date: 20180321
  Serious: Yes (Death)
  Sender: FDA-Public Use
  Company Number: PHHY2017PK182709

PATIENT
  Sex: Female
  Weight: 51 kg

DRUGS (1)
  1. GLIVEC [Suspect]
     Active Substance: IMATINIB MESYLATE
     Indication: CHRONIC MYELOID LEUKAEMIA
     Dosage: 400 MG, QD
     Route: 048
     Dates: start: 20061103, end: 20171123

REACTIONS (4)
  - Chronic myeloid leukaemia [Fatal]
  - Jaundice [Fatal]
  - Malignant neoplasm progression [Fatal]
  - Vomiting [Fatal]
